FAERS Safety Report 6742793-4 (Version None)
Quarter: 2010Q2

REPORT INFORMATION
  Report Type: 
  Country: None (occurrence: None)
  Receive Date: 20100525
  Receipt Date: 20100513
  Transmission Date: 20101027
  Serious: Yes (Disabling, Other)
  Sender: FDA-Public Use
  Company Number: 237671K09USA

PATIENT
  Age: 43 Year
  Sex: Female

DRUGS (2)
  1. REBIF [Suspect]
     Indication: MULTIPLE SCLEROSIS
     Dosage: 44 MCG, 3 IN 1 WK, SUBCUTANEOUS
     Route: 058
     Dates: start: 20070530
  2. EFFEXOR [Concomitant]

REACTIONS (4)
  - ARTHRALGIA [None]
  - DRUG HYPERSENSITIVITY [None]
  - OPTIC NERVE DISORDER [None]
  - WEIGHT INCREASED [None]
